FAERS Safety Report 23898243 (Version 2)
Quarter: 2024Q2

REPORT INFORMATION
  Report Type: Spontaneous
  Country: DE (occurrence: None)
  Receive Date: 20240524
  Receipt Date: 20240527
  Transmission Date: 20240716
  Serious: Yes (Life-Threatening, Other)
  Sender: FDA-Public Use
  Company Number: 2024A118741

PATIENT
  Age: 51 Year
  Sex: Female

DRUGS (2)
  1. LYNPARZA [Suspect]
     Active Substance: OLAPARIB
     Indication: Neoplasm malignant
     Route: 048
  2. LYNPARZA [Suspect]
     Active Substance: OLAPARIB
     Indication: Neoplasm malignant
     Route: 048

REACTIONS (7)
  - Nausea [Unknown]
  - Dizziness [Unknown]
  - Cardiovascular disorder [Unknown]
  - Syncope [Unknown]
  - Malignant neoplasm progression [Unknown]
  - Intentional product misuse [Unknown]
  - Off label use [Unknown]
